FAERS Safety Report 7982192-0 (Version None)
Quarter: 2011Q4

REPORT INFORMATION
  Report Type: 
  Country: None (occurrence: None)
  Receive Date: 20111215
  Receipt Date: 20111209
  Transmission Date: 20120403
  Serious: Yes (Death, Hospitalization)
  Sender: FDA-Public Use
  Company Number: US-GILEAD-2011-0048046

PATIENT
  Age: 74 Year
  Sex: Male

DRUGS (2)
  1. LETAIRIS [Suspect]
     Indication: PULMONARY HYPERTENSION
     Dosage: 10 MG,
     Route: 048
     Dates: start: 20080425
  2. TYVASO [Concomitant]

REACTIONS (4)
  - ANAEMIA [None]
  - PULMONARY HYPERTENSION [None]
  - PULMONARY FIBROSIS [None]
  - DEATH [None]
